FAERS Safety Report 9414859 (Version 2)
Quarter: 2013Q3

REPORT INFORMATION
  Report Type: Report from Study
  Country: DE (occurrence: DE)
  Receive Date: 20130723
  Receipt Date: 20130731
  Transmission Date: 20140515
  Serious: Yes (Life-Threatening, Hospitalization)
  Sender: FDA-Public Use
  Company Number: DE-ROCHE-1251950

PATIENT
  Age: 59 Year
  Sex: Male

DRUGS (10)
  1. PEG-INTERFERON ALFA 2A [Suspect]
     Indication: CHRONIC HEPATITIS C
     Route: 058
  2. RIBAVIRIN [Suspect]
     Indication: CHRONIC HEPATITIS C
     Route: 048
  3. BOCEPREVIR [Suspect]
     Indication: CHRONIC HEPATITIS C
     Route: 048
     Dates: start: 20130315, end: 201307
  4. CLEXANE [Concomitant]
  5. CLEXANE [Concomitant]
     Route: 065
  6. BIFITERAL [Concomitant]
     Route: 065
     Dates: start: 201306
  7. PANTOZOL (GERMANY) [Concomitant]
     Route: 065
     Dates: start: 201306
  8. SPIRONOLACTONE [Concomitant]
     Route: 065
     Dates: start: 201306
  9. INSULIN ACTRAPID [Concomitant]
  10. FURORESE [Concomitant]
     Route: 065

REACTIONS (1)
  - Ascites [Recovered/Resolved]
